FAERS Safety Report 20512562 (Version 1)
Quarter: 2022Q1

REPORT INFORMATION
  Report Type: Spontaneous
  Country: GB (occurrence: GB)
  Receive Date: 20220224
  Receipt Date: 20220224
  Transmission Date: 20220423
  Serious: Yes (Death, Hospitalization, Other)
  Sender: FDA-Public Use
  Company Number: GB-MYLANLABS-2022M1011736

PATIENT
  Age: 62 Year
  Sex: Female

DRUGS (4)
  1. ARIPIPRAZOLE [Suspect]
     Active Substance: ARIPIPRAZOLE
     Indication: Product used for unknown indication
     Dosage: INCREASED TO 15 MG, QD
     Route: 048
  2. ARIPIPRAZOLE [Suspect]
     Active Substance: ARIPIPRAZOLE
     Dosage: UNK
     Route: 065
  3. CLOZARIL [Suspect]
     Active Substance: CLOZAPINE
     Indication: Schizophrenia
     Dosage: 150 MG
     Route: 048
     Dates: start: 20161104
  4. CLOZARIL [Suspect]
     Active Substance: CLOZAPINE
     Dosage: REDUCED TO 100 MG
     Route: 048
     Dates: end: 20220111

REACTIONS (3)
  - Death [Fatal]
  - Cardiac failure [Unknown]
  - Mental impairment [Unknown]

NARRATIVE: CASE EVENT DATE: 20210101
